FAERS Safety Report 9778840 (Version 2)
Quarter: 2013Q4

REPORT INFORMATION
  Report Type: Spontaneous
  Country: US (occurrence: US)
  Receive Date: 20131223
  Receipt Date: 20131227
  Transmission Date: 20140711
  Serious: Yes (Hospitalization)
  Sender: FDA-Public Use
  Company Number: US-JNJFOC-20131210604

PATIENT
  Age: 66 Year
  Sex: Female
  Weight: 80 kg

DRUGS (13)
  1. RIVAROXABAN [Suspect]
     Indication: THROMBOSIS
     Route: 048
     Dates: start: 201312
  2. IVIGLOB-EX [Concomitant]
     Route: 065
  3. ALBUTEROL [Concomitant]
     Route: 065
  4. ALLOPURINOL [Concomitant]
     Route: 065
  5. BUPROPION [Concomitant]
     Route: 065
  6. DAPSONE [Concomitant]
     Route: 065
  7. HYDROCHLOROTHIAZIDE [Concomitant]
     Route: 065
  8. LEVOTHYROXINE [Concomitant]
     Route: 065
  9. LORAZEPAM [Concomitant]
     Route: 065
  10. MINOCYCLINE [Concomitant]
     Route: 065
  11. OMEPRAZOLE [Concomitant]
     Route: 065
  12. OXYBUTYNIN [Concomitant]
     Route: 065
  13. VALACYCLOVIR [Concomitant]
     Route: 065

REACTIONS (1)
  - Jugular vein thrombosis [Recovered/Resolved]
